FAERS Safety Report 20983922 (Version 3)
Quarter: 2022Q3

REPORT INFORMATION
  Report Type: Spontaneous
  Country: US (occurrence: US)
  Receive Date: 20220621
  Receipt Date: 20220702
  Transmission Date: 20221027
  Serious: No
  Sender: FDA-Public Use
  Company Number: US-JNJFOC-20220612375

PATIENT
  Sex: Male
  Weight: 79.450 kg

DRUGS (4)
  1. STELARA [Suspect]
     Active Substance: USTEKINUMAB
     Indication: Psoriatic arthropathy
     Route: 058
  2. STELARA [Suspect]
     Active Substance: USTEKINUMAB
  3. LISINOPRIL [Concomitant]
     Active Substance: LISINOPRIL
     Indication: Hypertension
  4. GABAPENTIN [Concomitant]
     Active Substance: GABAPENTIN
     Indication: Psoriatic arthropathy

REACTIONS (4)
  - Application site vesicles [Not Recovered/Not Resolved]
  - Product label issue [Unknown]
  - Device malfunction [Unknown]
  - Therapeutic response decreased [Unknown]
